FAERS Safety Report 18196597 (Version 3)
Quarter: 2020Q4

REPORT INFORMATION
  Report Type: Spontaneous
  Country: US (occurrence: US)
  Receive Date: 20200825
  Receipt Date: 20201014
  Transmission Date: 20210113
  Serious: No
  Sender: FDA-Public Use
  Company Number: US-AMGEN INC.-USASP2020137724

PATIENT
  Age: 50 Year
  Sex: Female

DRUGS (1)
  1. AIMOVIG [Suspect]
     Active Substance: ERENUMAB-AOOE
     Indication: MIGRAINE
     Dosage: 140 MILLIGRAM, QMO
     Route: 065
     Dates: start: 2018

REACTIONS (2)
  - Device physical property issue [Unknown]
  - Device use error [Unknown]

NARRATIVE: CASE EVENT DATE: 20200821
